FAERS Safety Report 6455624-7 (Version None)
Quarter: 2009Q4

REPORT INFORMATION
  Report Type: 
  Country: None (occurrence: None)
  Receive Date: 20091125
  Receipt Date: 20090825
  Transmission Date: 20100525
  Serious: No
  Sender: FDA-Public Use
  Company Number: US-ABBOTT-09P-163-0594376-00

PATIENT
  Sex: Female
  Weight: 69.008 kg

DRUGS (4)
  1. SIMCOR [Suspect]
     Indication: BLOOD CHOLESTEROL INCREASED
     Dosage: 500/20 MG II TABS
     Dates: start: 20070101, end: 20090201
  2. SIMCOR [Suspect]
     Dosage: 500/20 MG I TAB
     Route: 048
     Dates: start: 20090201
  3. DIOVAN [Concomitant]
     Indication: HYPERTENSION
     Dosage: UNKNOWN
     Route: 048
  4. MELOXICAM [Concomitant]
     Indication: ARTHRITIS
     Route: 048

REACTIONS (1)
  - FLUSHING [None]
